FAERS Safety Report 14617962 (Version 1)
Quarter: 2018Q1

REPORT INFORMATION
  Report Type: Spontaneous
  Country: US (occurrence: US)
  Receive Date: 20180309
  Receipt Date: 20180309
  Transmission Date: 20180509
  Serious: Yes (Hospitalization)
  Sender: FDA-Public Use
  Company Number: None

PATIENT
  Age: 76 Year
  Sex: Male
  Weight: 107 kg

DRUGS (1)
  1. SULFAMETHOXAZOLE/TRIMETHOPRIM [Suspect]
     Active Substance: SULFAMETHOXAZOLE\TRIMETHOPRIM
     Dosage: 800/160 MG BID PO
     Route: 048
     Dates: start: 20171115, end: 20171222

REACTIONS (3)
  - Blood creatinine increased [None]
  - Blood urea increased [None]
  - Hyperkalaemia [None]

NARRATIVE: CASE EVENT DATE: 20171202
